FAERS Safety Report 23163069 (Version 1)
Quarter: 2023Q4

REPORT INFORMATION
  Report Type: Spontaneous
  Country: BE (occurrence: BE)
  Receive Date: 20231109
  Receipt Date: 20231109
  Transmission Date: 20240110
  Serious: Yes (Other)
  Sender: FDA-Public Use
  Company Number: BE-ASPEN-GLO2023BE006852

PATIENT
  Age: 84 Year
  Sex: Male

DRUGS (3)
  1. APALUTAMIDE [Interacting]
     Active Substance: APALUTAMIDE
     Indication: Product used for unknown indication
     Dosage: UNK
     Route: 065
  2. DIGOXIN [Interacting]
     Active Substance: DIGOXIN
     Indication: Atrial fibrillation
     Dosage: 250 MCG/DAY, 5 TIMES A WEEK
     Dates: start: 2011
  3. DIGOXIN [Interacting]
     Active Substance: DIGOXIN
     Indication: Sinus node dysfunction

REACTIONS (3)
  - Drug interaction [Unknown]
  - Off label use [Unknown]
  - Toxicity to various agents [Unknown]

NARRATIVE: CASE EVENT DATE: 20110101
